FAERS Safety Report 8880428 (Version 1)
Quarter: 2012Q4

REPORT INFORMATION
  Report Type: 
  Country: US (occurrence: US)
  Receive Date: 20121101
  Receipt Date: 20121101
  Transmission Date: 20130627
  Serious: Yes (Hospitalization, Other)
  Sender: FDA-Public Use
  Company Number: PHEH2012US020788

PATIENT
  Sex: Female
  Weight: 65 kg

DRUGS (2)
  1. TASIGNA [Suspect]
     Indication: CHRONIC LYMPHOCYTIC LEUKAEMIA
     Dosage: 400 mg, BID
     Route: 048
     Dates: start: 20111104
  2. TRACLEER [Concomitant]
     Dosage: 125 mg, BID
     Route: 048

REACTIONS (3)
  - Post procedural complication [Unknown]
  - Pericardial effusion [Unknown]
  - Dyspnoea [Unknown]
